FAERS Safety Report 4587942-1 (Version None)
Quarter: 2005Q1

REPORT INFORMATION
  Report Type: 
  Country: None (occurrence: None)
  Receive Date: 20050215
  Receipt Date: 20050201
  Transmission Date: 20050727
  Serious: Yes (Hospitalization)
  Sender: FDA-Public Use
  Company Number: 2005-BP-01529NB

PATIENT
  Age: 72 Year
  Sex: Female

DRUGS (7)
  1. MOBIC [Suspect]
     Indication: OSTEOARTHRITIS
     Route: 048
     Dates: end: 20010907
  2. OPALMON              (LIMAPROST) [Suspect]
     Indication: SPINAL COLUMN STENOSIS
     Dosage: 3 ANZ
     Route: 048
     Dates: end: 20010907
  3. MYONAL           (EPERISONE HYDROCHLORIDE) [Concomitant]
  4. METHYCOBAL              (MECOBALAMIN) [Concomitant]
     Route: 048
  5. HERBESSER (DILTIAZEM HYDROCHLORIDE)(TA) [Concomitant]
     Route: 048
  6. GASMOTIN (MOSAPRIDE CITRATE) (TA) [Concomitant]
     Route: 048
  7. DEPAS (ETIZOLAM) [Concomitant]
     Indication: OSTEOARTHRITIS

REACTIONS (1)
  - DIVERTICULITIS INTESTINAL HAEMORRHAGIC [None]
